FAERS Safety Report 6695816-5 (Version None)
Quarter: 2010Q2

REPORT INFORMATION
  Report Type: 
  Country: None (occurrence: None)
  Receive Date: 20100421
  Receipt Date: 20100414
  Transmission Date: 20101027
  Serious: Yes (Other)
  Sender: FDA-Public Use
  Company Number: SPV1-2010-00132

PATIENT
  Age: 9 Year
  Sex: Male
  Weight: 28 kg

DRUGS (5)
  1. ELAPRASE            (IDURSULFASE) CONCENTRATE FOR SOLUTION [Suspect]
     Indication: MUCOPOLYSACCHARIDOSIS II
     Dosage: 13.5 MG, IV DRIP
     Route: 041
     Dates: start: 20081126, end: 20091224
  2. LORATADINE [Concomitant]
  3. HYDROXYZINE PAMOATE [Concomitant]
  4. METHYLPREDNISOLONE [Concomitant]
  5. HYDROCORTISONE SODIUM SUCCINATE [Concomitant]

REACTIONS (5)
  - EYELID OEDEMA [None]
  - HYPERSENSITIVITY [None]
  - INFUSION RELATED REACTION [None]
  - RESPIRATORY DISORDER [None]
  - URTICARIA [None]
